FAERS Safety Report 5645789-9 (Version None)
Quarter: 2008Q1

REPORT INFORMATION
  Report Type: 
  Country: None (occurrence: None)
  Receive Date: 20080229
  Receipt Date: 20080220
  Transmission Date: 20080703
  Serious: Yes (Disabling)
  Sender: FDA-Public Use
  Company Number: KR-BAXTER-2008BH001330

PATIENT
  Age: 50 Year
  Sex: Male
  Weight: 56 kg

DRUGS (10)
  1. FEIBA VH IMMUNO [Suspect]
     Indication: FACTOR VIII INHIBITION
     Route: 042
     Dates: start: 20060810
  2. FEIBA VH IMMUNO [Suspect]
     Indication: FACTOR IX INHIBITION
     Route: 042
     Dates: start: 20060810
  3. FEIBA VH IMMUNO [Suspect]
     Route: 042
     Dates: start: 20050103, end: 20060809
  4. FEIBA VH IMMUNO [Suspect]
     Route: 042
     Dates: start: 20050103, end: 20060809
  5. FEIBA VH IMMUNO [Suspect]
     Route: 042
     Dates: start: 20030416, end: 20041125
  6. FEIBA VH IMMUNO [Suspect]
     Route: 042
     Dates: start: 20030416, end: 20041125
  7. GREENMONO [Concomitant]
     Indication: HAEMORRHAGE
     Route: 042
     Dates: start: 20030609, end: 20030609
  8. GREENMONO [Concomitant]
     Route: 042
     Dates: start: 20041126, end: 20041217
  9. GREENMONO [Concomitant]
     Route: 042
     Dates: start: 20070317, end: 20070317
  10. GREENMONO [Concomitant]
     Route: 042
     Dates: start: 20010608, end: 20030415

REACTIONS (4)
  - BONE DISORDER [None]
  - CONDITION AGGRAVATED [None]
  - FEMUR FRACTURE [None]
  - MASS [None]
